FAERS Safety Report 6244032-X (Version None)
Quarter: 2009Q2

REPORT INFORMATION
  Report Type: 
  Country: None (occurrence: None)
  Receive Date: 20090625
  Receipt Date: 20070726
  Transmission Date: 20091009
  Serious: Yes (Other)
  Sender: FDA-Public Use
  Company Number: US-ASTRAZENECA-2007UW10951

PATIENT
  Age: 26529 Day
  Sex: Female
  Weight: 98.4 kg

DRUGS (19)
  1. SEROQUEL [Suspect]
     Route: 048
     Dates: start: 20040101
  2. SEROQUEL [Suspect]
     Dosage: 25 - 50 MG, AT NIGHT
     Route: 048
     Dates: start: 20060306
  3. LISINOPRIL [Concomitant]
     Indication: BLOOD PRESSURE
     Dosage: 40 - 80 MG
     Route: 048
     Dates: start: 20050510
  4. PAXIL [Concomitant]
     Indication: DEPRESSION
     Dosage: 30 - 40 MG
     Route: 048
     Dates: start: 20040104
  5. ATENOLOL [Concomitant]
     Indication: HYPERTENSION
     Dosage: 50 MG, TWO TABLETES EVERY DAY
     Route: 048
     Dates: start: 20040203
  6. GABAPENTIN [Concomitant]
     Route: 048
     Dates: start: 20040115
  7. SIMVASTATIN [Concomitant]
     Route: 048
     Dates: start: 20040603
  8. LORAZEPAM [Concomitant]
     Dosage: 10 MG, TWO TABLETES EVERYDAY
     Route: 048
     Dates: start: 20050726
  9. VENLAFAXINE HCL [Concomitant]
     Route: 048
     Dates: start: 20061003
  10. METHADONE HCL [Concomitant]
     Route: 048
     Dates: start: 20060208
  11. VALIUM [Concomitant]
     Route: 048
     Dates: start: 20060208
  12. SILDENAFIL CITRATE [Concomitant]
     Route: 048
     Dates: start: 20040812
  13. LORATADINE [Concomitant]
     Dosage: 0.5 MG DAILY 1-2 TABLETS
     Route: 048
     Dates: start: 20040707
  14. AMITRIPTYLINE HCL [Concomitant]
     Route: 048
     Dates: start: 20040203
  15. SERTRALINE HCL [Concomitant]
     Route: 048
     Dates: start: 20040203
  16. GLIPIZIDE [Concomitant]
     Dosage: 20 - 40 MG
     Route: 048
     Dates: start: 20040203
  17. BUPROPION [Concomitant]
     Route: 048
     Dates: start: 20040203
  18. CYCLOBENZAPRINE HCL [Concomitant]
     Route: 048
     Dates: start: 20040203
  19. INSULIN NPH [Concomitant]
     Dosage: 25 UNITS BEFORE MEALS
     Route: 058
     Dates: start: 20040812

REACTIONS (5)
  - DIABETES MELLITUS [None]
  - DIABETES MELLITUS INADEQUATE CONTROL [None]
  - DIABETIC NEUROPATHY [None]
  - HYPOGLYCAEMIA [None]
  - NEUROPATHY PERIPHERAL [None]
